FAERS Safety Report 9815302 (Version 1)
Quarter: 2014Q1

REPORT INFORMATION
  Report Type: Spontaneous
  Country: FR (occurrence: FR)
  Receive Date: 20140114
  Receipt Date: 20140114
  Transmission Date: 20141002
  Serious: Yes (Other)
  Sender: FDA-Public Use
  Company Number: FR-AMGEN-FRASP2014001605

PATIENT
  Age: 61 Year
  Sex: Female

DRUGS (1)
  1. ARANESP [Suspect]
     Indication: REFRACTORY ANAEMIA WITH AN EXCESS OF BLASTS
     Dosage: 1 DF, UNK
     Route: 058
     Dates: start: 20130701

REACTIONS (3)
  - Pruritus [Recovered/Resolved]
  - Skin lesion [Recovered/Resolved]
  - Eczema asteatotic [Unknown]
